FAERS Safety Report 4303633-6 (Version None)
Quarter: 2004Q1

REPORT INFORMATION
  Report Type: 
  Country: None (occurrence: None)
  Receive Date: 20040224
  Receipt Date: 20040224
  Transmission Date: 20041129
  Serious: No
  Sender: FDA-Public Use
  Company Number: None

PATIENT
  Sex: Female
  Weight: 56.6996 kg

DRUGS (1)
  1. PAXIL CR [Suspect]
     Indication: PANIC ATTACK
     Dosage: 25 MG ORAL
     Route: 048
     Dates: start: 20020901, end: 20040201

REACTIONS (3)
  - DISTURBANCE IN ATTENTION [None]
  - DRUG WITHDRAWAL SYNDROME [None]
  - NIGHTMARE [None]
